FAERS Safety Report 7745902-3 (Version None)
Quarter: 2011Q3

REPORT INFORMATION
  Report Type: 
  Country: None (occurrence: None)
  Receive Date: 20110913
  Receipt Date: 20110907
  Transmission Date: 20111222
  Serious: No
  Sender: FDA-Public Use
  Company Number: US-PFIZER INC-2011209734

PATIENT
  Sex: Female

DRUGS (4)
  1. APAP TAB [Suspect]
     Dosage: UNK
  2. LYRICA [Suspect]
     Dosage: UNK
  3. TRAMADOL HCL [Suspect]
     Dosage: UNK
  4. NAPROXEN (ALEVE) [Suspect]
     Dosage: UNK

REACTIONS (1)
  - JOINT INSTABILITY [None]
